FAERS Safety Report 10778624 (Version 2)
Quarter: 2016Q2

REPORT INFORMATION
  Report Type: Spontaneous
  Country: BR (occurrence: BR)
  Receive Date: 20150210
  Receipt Date: 20160510
  Transmission Date: 20160815
  Serious: Yes (Other)
  Sender: FDA-Public Use
  Company Number: BR-ROCHE-1533818

PATIENT
  Sex: Female
  Weight: 74 kg

DRUGS (7)
  1. RIVOTRIL [Suspect]
     Active Substance: CLONAZEPAM
     Dosage: 2 TABLETS
     Route: 048
  2. HYDROCHLOROTHIAZIDE. [Concomitant]
     Active Substance: HYDROCHLOROTHIAZIDE
     Indication: HYPERTENSION
     Dosage: DURING BREAKFAST (DAILY)
     Route: 065
     Dates: start: 2010
  3. RISPERIDONE. [Concomitant]
     Active Substance: RISPERIDONE
     Dosage: AT NIGHT
     Route: 065
     Dates: start: 201501
  4. ATENOLOL. [Concomitant]
     Active Substance: ATENOLOL
     Indication: HYPERTENSION
     Dosage: DURING BREAKFAST (DAILY)
     Route: 065
     Dates: start: 2010
  5. RIVOTRIL [Suspect]
     Active Substance: CLONAZEPAM
     Indication: PANIC DISORDER
     Dosage: AT NIGHT (DAILY)
     Route: 048
     Dates: start: 201501
  6. PAROXETINE HYDROCHLORIDE. [Concomitant]
     Active Substance: PAROXETINE HYDROCHLORIDE
     Indication: ANXIETY
     Dosage: AFTER BREAKFAST (DAILY)
     Route: 065
     Dates: start: 201501
  7. AMLODIPINE BESYLATE. [Concomitant]
     Active Substance: AMLODIPINE BESYLATE
     Indication: HYPERTENSION
     Dosage: DURING BREAKFAST (DAILY)
     Route: 065
     Dates: start: 2010

REACTIONS (9)
  - Incorrect dose administered [Unknown]
  - Throat tightness [Not Recovered/Not Resolved]
  - Dry mouth [Not Recovered/Not Resolved]
  - Somnolence [Not Recovered/Not Resolved]
  - Headache [Not Recovered/Not Resolved]
  - Dyspnoea [Not Recovered/Not Resolved]
  - Back pain [Not Recovered/Not Resolved]
  - Sluggishness [Not Recovered/Not Resolved]
  - Oral discomfort [Not Recovered/Not Resolved]
